FAERS Safety Report 8189460-0 (Version None)
Quarter: 2012Q1

REPORT INFORMATION
  Report Type: 
  Country: None (occurrence: None)
  Receive Date: 20120307
  Receipt Date: 20120302
  Transmission Date: 20120608
  Serious: No
  Sender: FDA-Public Use
  Company Number: US-PFIZER INC-2012056926

PATIENT
  Sex: Female
  Weight: 52.608 kg

DRUGS (1)
  1. ARMODAFINIL [Suspect]
     Indication: FUNGAL INFECTION
     Dosage: 150 MG DAILY
     Route: 048
     Dates: start: 20120110, end: 20120112

REACTIONS (1)
  - URTICARIA [None]
